FAERS Safety Report 21347507 (Version 2)
Quarter: 2022Q4

REPORT INFORMATION
  Report Type: Spontaneous
  Country: US (occurrence: US)
  Receive Date: 20220919
  Receipt Date: 20221218
  Transmission Date: 20230113
  Serious: Yes (Other)
  Sender: FDA-Public Use
  Company Number: US-JNJFOC-20220922000

PATIENT
  Age: 64 Year
  Sex: Female

DRUGS (20)
  1. ELMIRON [Suspect]
     Active Substance: PENTOSAN POLYSULFATE SODIUM
     Indication: Cystitis interstitial
     Dosage: 300 MG PER DAY
     Route: 048
     Dates: start: 1994, end: 2003
  2. ELMIRON [Suspect]
     Active Substance: PENTOSAN POLYSULFATE SODIUM
     Dosage: 300 MG PER DAY
     Route: 048
     Dates: start: 20031107, end: 20080104
  3. ELMIRON [Suspect]
     Active Substance: PENTOSAN POLYSULFATE SODIUM
     Dosage: 300 MG PER DAY
     Route: 048
     Dates: start: 200802, end: 20161213
  4. ELMIRON [Suspect]
     Active Substance: PENTOSAN POLYSULFATE SODIUM
     Dosage: 300 MG PER DAY
     Route: 048
     Dates: start: 20170421, end: 20200113
  5. HYDROXYZINE [Concomitant]
     Active Substance: HYDROXYZINE HYDROCHLORIDE
     Indication: Cystitis interstitial
     Dates: start: 20110220, end: 20161019
  6. HYDROXYZINE [Concomitant]
     Active Substance: HYDROXYZINE HYDROCHLORIDE
     Dates: start: 20050802, end: 20071130
  7. HYDROXYZINE [Concomitant]
     Active Substance: HYDROXYZINE HYDROCHLORIDE
     Dates: start: 20170117, end: 20170117
  8. HYDROXYZINE [Concomitant]
     Active Substance: HYDROXYZINE HYDROCHLORIDE
     Dates: start: 20170429, end: 20190417
  9. HYDROXYZINE [Concomitant]
     Active Substance: HYDROXYZINE HYDROCHLORIDE
     Dates: start: 20200409, end: 20210314
  10. DESIPRAMINE [Concomitant]
     Active Substance: DESIPRAMINE
     Indication: Cystitis interstitial
     Dates: start: 1997, end: 20070930
  11. DESIPRAMINE [Concomitant]
     Active Substance: DESIPRAMINE
     Dates: start: 20110407, end: 20131008
  12. ESTRADIOL;PROGESTERONE [Concomitant]
     Indication: Vulvovaginal pain
     Dates: start: 2002
  13. HYOSCYAMINE [Concomitant]
     Active Substance: HYOSCYAMINE
     Indication: Cystitis interstitial
     Dates: start: 1997, end: 2011
  14. HYOSCYAMINE [Concomitant]
     Active Substance: HYOSCYAMINE
     Dates: start: 2011
  15. LIDOCAINE [Concomitant]
     Active Substance: LIDOCAINE
     Indication: Vulvovaginal pain
     Dates: start: 2002
  16. TESTOSTERONE [Concomitant]
     Active Substance: TESTOSTERONE
     Indication: Vulvovaginal pain
     Dates: start: 2002
  17. TRETINOIN [Concomitant]
     Active Substance: TRETINOIN
     Indication: Skin disorder
     Dates: start: 20060606, end: 20080115
  18. TRETINOIN [Concomitant]
     Active Substance: TRETINOIN
     Dates: start: 20090311, end: 20100117
  19. TRETINOIN [Concomitant]
     Active Substance: TRETINOIN
     Dates: start: 20120303, end: 20161004
  20. TRETINOIN [Concomitant]
     Active Substance: TRETINOIN
     Dates: start: 20170801

REACTIONS (3)
  - Neovascular age-related macular degeneration [Not Recovered/Not Resolved]
  - Dry age-related macular degeneration [Not Recovered/Not Resolved]
  - Maculopathy [Unknown]

NARRATIVE: CASE EVENT DATE: 20130101
